FAERS Safety Report 5368314-9 (Version None)
Quarter: 2007Q2

REPORT INFORMATION
  Report Type: 
  Country: None (occurrence: None)
  Receive Date: 20070625
  Receipt Date: 20070615
  Transmission Date: 20071010
  Serious: Yes (Hospitalization, Other)
  Sender: FDA-Public Use
  Company Number: FR-ABBOTT-07P-056-0371640-00

PATIENT
  Sex: Female
  Weight: 90 kg

DRUGS (3)
  1. KALETRA [Suspect]
     Indication: HIV INFECTION
     Route: 048
     Dates: start: 20040101
  2. LAMIVUDINE + ZIDOVUDINE [Concomitant]
     Indication: HIV INFECTION
     Route: 048
     Dates: start: 19980101, end: 20070417
  3. SAQUINAVIR [Concomitant]
     Indication: HIV INFECTION
     Route: 048
     Dates: start: 20070430

REACTIONS (5)
  - ANAEMIA [None]
  - BLOOD ALBUMIN ABNORMAL [None]
  - CHOLESTASIS [None]
  - CYTOLYTIC HEPATITIS [None]
  - LABORATORY TEST ABNORMAL [None]
